FAERS Safety Report 21442993 (Version 3)
Quarter: 2022Q4

REPORT INFORMATION
  Report Type: Spontaneous
  Country: JP (occurrence: JP)
  Receive Date: 20221012
  Receipt Date: 20221213
  Transmission Date: 20230112
  Serious: Yes (Death)
  Sender: FDA-Public Use
  Company Number: JP-JNJFOC-20221005672

PATIENT
  Age: 72 Year
  Sex: Female

DRUGS (8)
  1. UPTRAVI [Suspect]
     Active Substance: SELEXIPAG
     Indication: Pulmonary arterial hypertension
     Dosage: 0.2-1.0MG PER TIME
     Route: 048
  2. UPTRAVI [Suspect]
     Active Substance: SELEXIPAG
     Route: 048
  3. UPTRAVI [Suspect]
     Active Substance: SELEXIPAG
     Route: 048
  4. UPTRAVI [Suspect]
     Active Substance: SELEXIPAG
     Route: 048
  5. UPTRAVI [Suspect]
     Active Substance: SELEXIPAG
     Route: 048
  6. UPTRAVI [Suspect]
     Active Substance: SELEXIPAG
     Route: 048
  7. OPSUMIT [Suspect]
     Active Substance: MACITENTAN
     Indication: Pulmonary arterial hypertension
     Route: 048
     Dates: start: 20220930
  8. TADALAFIL [Suspect]
     Active Substance: TADALAFIL
     Indication: Pulmonary arterial hypertension
     Route: 048

REACTIONS (2)
  - Pulmonary arterial hypertension [Fatal]
  - Haemodynamic instability [Unknown]

NARRATIVE: CASE EVENT DATE: 20220930
